FAERS Safety Report 16626757 (Version 1)
Quarter: 2019Q3

REPORT INFORMATION
  Report Type: Spontaneous
  Country: FR (occurrence: FR)
  Receive Date: 20190724
  Receipt Date: 20190724
  Transmission Date: 20191004
  Serious: Yes (Hospitalization)
  Sender: FDA-Public Use
  Company Number: FR-JNJFOC-20190728701

PATIENT
  Age: 34 Year
  Sex: Male
  Weight: 83 kg

DRUGS (4)
  1. VALIUM [Suspect]
     Active Substance: DIAZEPAM
     Indication: PRODUCT USED FOR UNKNOWN INDICATION
     Dosage: 100 MG, ONCE
     Route: 048
     Dates: start: 20171222, end: 20171222
  2. TRAMADOL HYDROCHLORIDE. [Suspect]
     Active Substance: TRAMADOL HYDROCHLORIDE
     Indication: PRODUCT USED FOR UNKNOWN INDICATION
     Route: 048
     Dates: start: 20171222, end: 20171222
  3. BIPROFENID [Suspect]
     Active Substance: KETOPROFEN
     Indication: PRODUCT USED FOR UNKNOWN INDICATION
     Dosage: 2000 MG, ONCE
     Route: 048
     Dates: start: 20171222, end: 20171222
  4. LAMALINE                           /00764901/ [Suspect]
     Active Substance: ACETAMINOPHEN\BELLADONNA LEAF\CAFFEINE\OPIUM
     Indication: PRODUCT USED FOR UNKNOWN INDICATION
     Dosage: 10 DF, ONCE
     Route: 048
     Dates: start: 20171222, end: 20171222

REACTIONS (9)
  - Loss of consciousness [Recovered/Resolved]
  - Coma [Recovered/Resolved]
  - Acute kidney injury [Recovered/Resolved]
  - Poisoning deliberate [Recovered/Resolved]
  - Seizure [Recovered/Resolved]
  - Anterograde amnesia [Recovered/Resolved]
  - Toxicity to various agents [Recovered/Resolved]
  - Somnolence [Recovered/Resolved]
  - Disorientation [Recovered/Resolved]

NARRATIVE: CASE EVENT DATE: 20171222
